FAERS Safety Report 5401990-0 (Version None)
Quarter: 2007Q3

REPORT INFORMATION
  Report Type: 
  Country: None (occurrence: None)
  Receive Date: 20070727
  Receipt Date: 20070710
  Transmission Date: 20080115
  Serious: Yes (Life-Threatening, Hospitalization, Other)
  Sender: FDA-Public Use
  Company Number: US019511

PATIENT
  Age: 58 Year
  Sex: Female

DRUGS (10)
  1. TRISENOX [Suspect]
     Indication: ACUTE PROMYELOCYTIC LEUKAEMIA
     Dosage: 7.5 MG QD INTRAVENOUS DRIP
     Route: 041
     Dates: start: 20070123, end: 20070130
  2. TRISENOX [Suspect]
     Indication: ACUTE PROMYELOCYTIC LEUKAEMIA
     Dosage: 7.5 MG QD INTRAVENOUS DRIP
     Route: 041
     Dates: start: 20070201, end: 20070201
  3. TRISENOX [Suspect]
     Indication: ACUTE PROMYELOCYTIC LEUKAEMIA
     Dosage: 7.5 MG QD INTRAVENOUS DRIP
     Route: 041
     Dates: start: 20070205, end: 20070208
  4. IDARUBICIN HCL [Concomitant]
  5. NAFAMOSTAT MESILATE [Concomitant]
  6. GLUCOSE W/ELECTROLYTES [Concomitant]
  7. ELECTROLYTE [Concomitant]
  8. PARENTERAL FLUID OF HIGH-CALORIE [Concomitant]
  9. INSULIN HUMAN (GENETICAL RECOMBINATION) [Concomitant]
  10. POTASSIUM REPLACEMENT [Concomitant]

REACTIONS (13)
  - ALANINE AMINOTRANSFERASE INCREASED [None]
  - ASPARTATE AMINOTRANSFERASE INCREASED [None]
  - BACK PAIN [None]
  - BONE PAIN [None]
  - DISSEMINATED INTRAVASCULAR COAGULATION [None]
  - ELECTROCARDIOGRAM QT PROLONGED [None]
  - HYPERCALCAEMIA [None]
  - HYPERGLYCAEMIA [None]
  - HYPERKALAEMIA [None]
  - HYPOALBUMINAEMIA [None]
  - HYPONATRAEMIA [None]
  - NAUSEA [None]
  - VOMITING [None]
